FAERS Safety Report 7108440-7 (Version None)
Quarter: 2010Q4

REPORT INFORMATION
  Report Type: 
  Country: None (occurrence: None)
  Receive Date: 20101117
  Receipt Date: 20101109
  Transmission Date: 20110411
  Serious: Yes (Other)
  Sender: FDA-Public Use
  Company Number: B0680247A

PATIENT
  Age: 51 Year
  Sex: Female
  Weight: 44 kg

DRUGS (3)
  1. VOTRIENT [Suspect]
     Dosage: 800MG PER DAY
     Route: 065
     Dates: start: 20100715
  2. LEVOTHYROXINE [Concomitant]
     Indication: HYPOTHYROIDISM
  3. NORVASC [Concomitant]
     Dosage: 5MG PER DAY

REACTIONS (3)
  - HYPERGLYCAEMIA [None]
  - OFF LABEL USE [None]
  - SYNCOPE [None]
